FAERS Safety Report 5721467-2 (Version None)
Quarter: 2008Q2

REPORT INFORMATION
  Report Type: 
  Country: None (occurrence: None)
  Receive Date: 20080428
  Receipt Date: 20080428
  Transmission Date: 20081010
  Serious: Yes (Life-Threatening, Other)
  Sender: FDA-Public Use
  Company Number: None

PATIENT
  Age: 29 Year
  Sex: Female
  Weight: 88.4514 kg

DRUGS (2)
  1. CYMBALTA [Suspect]
     Indication: ANALGESIA
     Dosage: 30MG 1 DAILY PO
     Route: 048
     Dates: start: 20060102, end: 20080414
  2. CYMBALTA [Suspect]
     Indication: DEPRESSION
     Dosage: 30MG 1 DAILY PO
     Route: 048
     Dates: start: 20060102, end: 20080414

REACTIONS (24)
  - ADVERSE DRUG REACTION [None]
  - ANGER [None]
  - APATHY [None]
  - BALANCE DISORDER [None]
  - CRYING [None]
  - DEPRESSION [None]
  - DIARRHOEA [None]
  - DRUG WITHDRAWAL SYNDROME [None]
  - FATIGUE [None]
  - FEAR [None]
  - HEADACHE [None]
  - HEART RATE ABNORMAL [None]
  - HUNGER [None]
  - HYPERTENSION [None]
  - IMPAIRED DRIVING ABILITY [None]
  - IRRITABILITY [None]
  - LETHARGY [None]
  - MALAISE [None]
  - MENTAL DISORDER [None]
  - NAUSEA [None]
  - PANIC ATTACK [None]
  - PERFORMANCE STATUS DECREASED [None]
  - VERTIGO [None]
  - WEIGHT INCREASED [None]
